FAERS Safety Report 15939805 (Version 2)
Quarter: 2019Q1

REPORT INFORMATION
  Report Type: Spontaneous
  Country: US (occurrence: US)
  Receive Date: 20190208
  Receipt Date: 20190219
  Transmission Date: 20190417
  Serious: Yes (Other)
  Sender: FDA-Public Use
  Company Number: US-ASTRAZENECA-2019SE11581

PATIENT
  Weight: 138.3 kg

DRUGS (14)
  1. NEXIUM [Suspect]
     Active Substance: ESOMEPRAZOLE MAGNESIUM
     Dosage: FOR MULTIPLE AND VARIOUS YEARS
     Route: 048
  2. CHLORHEXIDINE [Concomitant]
     Active Substance: CHLORHEXIDINE
  3. DOXAZOSIN [Concomitant]
     Active Substance: DOXAZOSIN\DOXAZOSIN MESYLATE
  4. LATANOPROST. [Concomitant]
     Active Substance: LATANOPROST
  5. SULAR [Concomitant]
     Active Substance: NISOLDIPINE
  6. AMLODIPINE BESYLATE. [Concomitant]
     Active Substance: AMLODIPINE BESYLATE
  7. AMOXICILLIN. [Concomitant]
     Active Substance: AMOXICILLIN
  8. LISINOPRIL. [Concomitant]
     Active Substance: LISINOPRIL
  9. NEXIUM 24HR [Suspect]
     Active Substance: ESOMEPRAZOLE MAGNESIUM
     Dosage: FOR MULTIPLE AND VARIOUS YEARS
     Route: 048
  10. CLINDAMYCIN. [Concomitant]
     Active Substance: CLINDAMYCIN
  11. LATANOPROST. [Concomitant]
     Active Substance: LATANOPROST
  12. NEXIUM [Suspect]
     Active Substance: ESOMEPRAZOLE MAGNESIUM
     Route: 048
  13. LUMIGAN [Concomitant]
     Active Substance: BIMATOPROST
  14. LOSARTAN. [Concomitant]
     Active Substance: LOSARTAN

REACTIONS (5)
  - Renal failure [Unknown]
  - Renal injury [Unknown]
  - End stage renal disease [Unknown]
  - Rebound acid hypersecretion [Unknown]
  - Chronic kidney disease [Unknown]
